FAERS Safety Report 17572717 (Version 1)
Quarter: 2020Q1

REPORT INFORMATION
  Report Type: Spontaneous
  Country: US (occurrence: US)
  Receive Date: 20200323
  Receipt Date: 20200323
  Transmission Date: 20200409
  Serious: No
  Sender: FDA-Public Use
  Company Number: US-SA-2020SA072485

PATIENT
  Age: 46 Year
  Sex: Female

DRUGS (14)
  1. VIT D [Concomitant]
     Active Substance: VITAMIN D NOS
  2. ENOXAPARIN [Concomitant]
     Active Substance: ENOXAPARIN
  3. LORAZEPAM. [Concomitant]
     Active Substance: LORAZEPAM
  4. MONTELUKAST [Concomitant]
     Active Substance: MONTELUKAST SODIUM
  5. PREDNISONE. [Concomitant]
     Active Substance: PREDNISONE
  6. HYDROCORT [HYDROCORTISONE ACETATE] [Concomitant]
  7. HYDROXYZINE HCL [Concomitant]
     Active Substance: HYDROXYZINE HYDROCHLORIDE
  8. SERTRALINE [Concomitant]
     Active Substance: SERTRALINE HYDROCHLORIDE
  9. TACROLIMUS. [Concomitant]
     Active Substance: TACROLIMUS
  10. DUPIXENT [Suspect]
     Active Substance: DUPILUMAB
     Indication: DERMATITIS ATOPIC
     Dosage: 600 MG, QOW
     Route: 058
     Dates: start: 20200305
  11. DULOXETINE. [Concomitant]
     Active Substance: DULOXETINE
  12. TRIAMCINOLONE [Concomitant]
     Active Substance: TRIAMCINOLONE
  13. FOLIC ACID. [Concomitant]
     Active Substance: FOLIC ACID
  14. KETOCONAZOLE. [Concomitant]
     Active Substance: KETOCONAZOLE

REACTIONS (3)
  - Eye pruritus [Not Recovered/Not Resolved]
  - Product use issue [Unknown]
  - Sleep deficit [Not Recovered/Not Resolved]

NARRATIVE: CASE EVENT DATE: 20200305
